FAERS Safety Report 9671037 (Version 1)
Quarter: 2013Q4

REPORT INFORMATION
  Report Type: Spontaneous
  Country: US (occurrence: US)
  Receive Date: 20131106
  Receipt Date: 20131106
  Transmission Date: 20140711
  Serious: No
  Sender: FDA-Public Use
  Company Number: US-BAYER-2013-135131

PATIENT
  Age: 76 Year
  Sex: Male
  Weight: 108.84 kg

DRUGS (5)
  1. ALEVE TABLET [Suspect]
     Indication: JOINT SWELLING
     Dosage: 1-2 DF, QD
     Route: 048
     Dates: start: 201310
  2. ALEVE TABLET [Suspect]
     Indication: ARTHRITIS
  3. LISINOPRIL [Concomitant]
  4. ATENOLOL [Concomitant]
  5. CENTRUM SILVER [Concomitant]

REACTIONS (2)
  - Drug ineffective [None]
  - Incorrect drug administration duration [None]
